FAERS Safety Report 6966888-5 (Version None)
Quarter: 2010Q3

REPORT INFORMATION
  Report Type: 
  Country: None (occurrence: None)
  Receive Date: 20100906
  Receipt Date: 20100831
  Transmission Date: 20110219
  Serious: Yes (Death)
  Sender: FDA-Public Use
  Company Number: PHHY2010JP36312

PATIENT
  Sex: Female

DRUGS (11)
  1. CGS 20267 T30748+TAB [Suspect]
     Indication: BREAST CANCER
     Dosage: 2.5 MG
     Route: 048
     Dates: start: 20070730
  2. NOLVADEX [Concomitant]
     Dosage: UNK
     Route: 048
     Dates: start: 20060920, end: 20070702
  3. TAXOL [Concomitant]
     Indication: BREAST CANCER
     Dosage: 80 MG
     Dates: start: 20080331, end: 20081208
  4. TAXOL [Concomitant]
     Dosage: 120 MG, UNK
     Route: 023
     Dates: start: 20080225
  5. OXYCONTIN [Concomitant]
     Dosage: 10 MG
     Route: 048
     Dates: start: 20080219
  6. OXYCONTIN [Concomitant]
     Dosage: 20 MG
     Route: 048
     Dates: end: 20090105
  7. LOXONIN [Concomitant]
     Dosage: 240 MG
     Route: 048
     Dates: start: 20080219
  8. LOXONIN [Concomitant]
     Dosage: 180 MG
     Route: 048
     Dates: end: 20090121
  9. CYTOTEC [Concomitant]
     Dosage: 800 MG
     Route: 048
     Dates: start: 20080219
  10. CYTOTEC [Concomitant]
     Dosage: 600 MG
     Route: 048
     Dates: end: 20090121
  11. NOVAMIN [Concomitant]
     Dosage: 15 MG
     Route: 048
     Dates: start: 20080307, end: 20090121

REACTIONS (4)
  - LEUKOPENIA [None]
  - MALIGNANT NEOPLASM PROGRESSION [None]
  - METASTASES TO BONE [None]
  - METASTASES TO LYMPH NODES [None]
